FAERS Safety Report 8659612 (Version 2)
Quarter: 2014Q1

REPORT INFORMATION
  Report Type: Spontaneous
  Country: JP (occurrence: None)
  Receive Date: 20120626
  Receipt Date: 20140220
  Transmission Date: 20141002
  Serious: Yes (Other)
  Sender: FDA-Public Use
  Company Number: ADR-2012-01154

PATIENT
  Sex: Female

DRUGS (1)
  1. BACLOFEN [Suspect]

REACTIONS (4)
  - Spinal cord infarction [None]
  - Muscle spasticity [None]
  - Calculus urinary [None]
  - Paralysis [None]
